FAERS Safety Report 4782452-0 (Version None)
Quarter: 2005Q3

REPORT INFORMATION
  Report Type: 
  Country: None (occurrence: None)
  Receive Date: 20050929
  Receipt Date: 20041109
  Transmission Date: 20060218
  Serious: No
  Sender: FDA-Public Use
  Company Number: 389556

PATIENT
  Age: 56 Year
  Sex: Male

DRUGS (3)
  1. COREG [Suspect]
     Indication: HYPERTENSION
     Dosage: 12.5MG PER DAY
     Route: 048
     Dates: start: 20030101
  2. NORVASC [Concomitant]
  3. ALTACE [Concomitant]

REACTIONS (1)
  - BLOOD GLUCOSE DECREASED [None]
